FAERS Safety Report 8285998-6 (Version None)
Quarter: 2012Q2

REPORT INFORMATION
  Report Type: 
  Country: None (occurrence: None)
  Receive Date: 20120416
  Receipt Date: 20120412
  Transmission Date: 20120825
  Serious: Yes (Other)
  Sender: FDA-Public Use
  Company Number: US-BIOGENIDEC-2012BI002273

PATIENT
  Age: 45 Year
  Sex: Female

DRUGS (6)
  1. VENTOLIN DS [Concomitant]
     Indication: WHEEZING
  2. BIOTIN [Concomitant]
     Route: 048
  3. TYLENOL (CAPLET) [Concomitant]
     Indication: PREMEDICATION
     Route: 048
  4. TYSABRI [Suspect]
     Indication: MULTIPLE SCLEROSIS
     Route: 042
     Dates: start: 20100426
  5. SYNTHROID [Concomitant]
     Route: 048
  6. VITAMIN D [Concomitant]
     Route: 048

REACTIONS (1)
  - BREAST CANCER [None]
